FAERS Safety Report 9504522 (Version 1)
Quarter: 2013Q3

REPORT INFORMATION
  Report Type: Spontaneous
  Country: US (occurrence: US)
  Receive Date: 20130906
  Receipt Date: 20130906
  Transmission Date: 20140515
  Serious: Yes (Death, Other)
  Sender: FDA-Public Use
  Company Number: PHHY2013US097422

PATIENT
  Age: 2 Month
  Sex: Male

DRUGS (4)
  1. FUROSEMIDE [Suspect]
     Indication: HEART DISEASE CONGENITAL
  2. ENALAPRIL [Suspect]
     Indication: PROTEINURIA
     Dosage: 0.05 MG/KG, UNK
     Route: 048
  3. ENALAPRIL [Suspect]
     Indication: PROTEINURIA
     Dosage: 2 DF, UNK
     Route: 042
  4. CHLOROTHIAZIDE [Suspect]
     Indication: HEART DISEASE CONGENITAL
     Dosage: 10 MG/KG, BID

REACTIONS (7)
  - Pulmonary hypertension [Fatal]
  - Respiratory failure [Fatal]
  - Renal failure acute [Unknown]
  - Hypotension [Recovered/Resolved]
  - Blood urea increased [Recovered/Resolved]
  - Blood creatinine increased [Recovered/Resolved]
  - Oliguria [Unknown]
